FAERS Safety Report 4867845-5 (Version None)
Quarter: 2005Q4

REPORT INFORMATION
  Report Type: 
  Country: None (occurrence: None)
  Receive Date: 20051228
  Receipt Date: 20051101
  Transmission Date: 20060501
  Serious: Yes (Hospitalization)
  Sender: FDA-Public Use
  Company Number: DE-MERCK-0511DEU00008

PATIENT
  Age: 51 Year
  Sex: Female
  Weight: 62 kg

DRUGS (3)
  1. SINGULAIR [Suspect]
     Indication: BRONCHITIS
     Route: 048
     Dates: start: 20050210, end: 20050501
  2. BUDESONIDE AND FORMOTEROL FUMARATE [Concomitant]
     Indication: COUGH
     Route: 065
  3. ESOMEPRAZOLE MAGNESIUM [Concomitant]
     Route: 065

REACTIONS (3)
  - COLLAGEN DISORDER [None]
  - EOSINOPHILIA [None]
  - SJOGREN'S SYNDROME [None]
